FAERS Safety Report 21734348 (Version 1)
Quarter: 2022Q4

REPORT INFORMATION
  Report Type: Spontaneous
  Country: US (occurrence: US)
  Receive Date: 20221215
  Receipt Date: 20221215
  Transmission Date: 20230112
  Serious: Yes (Other)
  Sender: FDA-Public Use
  Company Number: US-BEH-2022153176

PATIENT
  Sex: Female

DRUGS (1)
  1. HIZENTRA [Suspect]
     Active Substance: HUMAN IMMUNOGLOBULIN G
     Indication: Immunodeficiency common variable
     Dosage: 8 GRAM, QW
     Route: 058
     Dates: start: 20220824

REACTIONS (5)
  - COVID-19 [Unknown]
  - Weight fluctuation [Unknown]
  - Pneumonia [Unknown]
  - Influenza [Unknown]
  - Atrial fibrillation [Unknown]
